FAERS Safety Report 23386646 (Version 1)
Quarter: 2024Q1

REPORT INFORMATION
  Report Type: Spontaneous
  Country: CA (occurrence: CA)
  Receive Date: 20240110
  Receipt Date: 20240110
  Transmission Date: 20240410
  Serious: Yes (Other)
  Sender: FDA-Public Use
  Company Number: CA-BEH-2024167023

PATIENT
  Age: 32 Year
  Sex: Male

DRUGS (1)
  1. ALBUREX [Suspect]
     Active Substance: ALBUMIN HUMAN
     Indication: Anaemia
     Dosage: 500 MILLILITER (4/4)
     Route: 065
     Dates: start: 20231221, end: 20231222

REACTIONS (8)
  - Tachycardia [Unknown]
  - Hypotension [Unknown]
  - Shock [Unknown]
  - Hypoxia [Unknown]
  - Blood pressure decreased [Unknown]
  - Blood pressure systolic increased [Unknown]
  - No adverse event [Unknown]
  - Off label use [Unknown]

NARRATIVE: CASE EVENT DATE: 20231222
